FAERS Safety Report 21111121 (Version 1)
Quarter: 2022Q3

REPORT INFORMATION
  Report Type: Spontaneous
  Country: US (occurrence: None)
  Receive Date: 20220720
  Receipt Date: 20220720
  Transmission Date: 20221027
  Serious: Yes (Other)
  Sender: FDA-Public Use
  Company Number: None

PATIENT
  Age: 75 Year
  Sex: Female
  Weight: 92.57 kg

DRUGS (15)
  1. TAFINLAR [Suspect]
     Active Substance: DABRAFENIB MESYLATE
     Indication: Thyroid cancer
     Dosage: FREQUENCY : TWICE A DAY;?
     Route: 048
  2. TAFINLAR [Suspect]
     Active Substance: DABRAFENIB MESYLATE
     Indication: Lymphoma
  3. LANSOPRAZOLE [Concomitant]
     Active Substance: LANSOPRAZOLE
  4. LEVOTHYROXINE [Concomitant]
     Active Substance: LEVOTHYROXINE
  5. LISINOPRIL [Concomitant]
     Active Substance: LISINOPRIL
  6. MECLIZINE [Concomitant]
     Active Substance: MECLIZINE HYDROCHLORIDE
  7. NYSTATIN [Concomitant]
     Active Substance: NYSTATIN
  8. OLANZAPINE [Concomitant]
     Active Substance: OLANZAPINE
  9. ONDANSETRON [Concomitant]
     Active Substance: ONDANSETRON
  10. POLYETHYLENE GLYCOL 3350 [Concomitant]
     Active Substance: POLYETHYLENE GLYCOL 3350
  11. SUDAFED [Concomitant]
     Active Substance: PSEUDOEPHEDRINE HYDROCHLORIDE
  12. ROPINIROLE [Concomitant]
     Active Substance: ROPINIROLE
  13. SERTRALINE [Concomitant]
     Active Substance: SERTRALINE HYDROCHLORIDE
  14. THIAMINE [Concomitant]
     Active Substance: THIAMINE
  15. LOVENOX [Concomitant]
     Active Substance: ENOXAPARIN SODIUM

REACTIONS (1)
  - Hospice care [None]
